FAERS Safety Report 5031609-2 (Version None)
Quarter: 2006Q2

REPORT INFORMATION
  Report Type: 
  Country: None (occurrence: None)
  Receive Date: 20060616
  Receipt Date: 20060608
  Transmission Date: 20061013
  Serious: Yes (Death, Hospitalization)
  Sender: FDA-Public Use
  Company Number: 2006-DE-02294GD

PATIENT
  Age: 25 Year
  Sex: Female

DRUGS (3)
  1. PREDNISONE [Suspect]
     Indication: SYSTEMIC LUPUS ERYTHEMATOSUS
     Dosage: 10 MG
  2. AZATHIOPRINE [Suspect]
     Indication: SYSTEMIC LUPUS ERYTHEMATOSUS
     Dosage: 150 MG
  3. HYDROXYCHLOROQUINE SULFATE [Suspect]
     Indication: SYSTEMIC LUPUS ERYTHEMATOSUS
     Dosage: PO
     Route: 048

REACTIONS (3)
  - CONVULSION [None]
  - MENINGITIS CRYPTOCOCCAL [None]
  - PULMONARY HYPERTENSION [None]
